FAERS Safety Report 23915931 (Version 1)
Quarter: 2024Q2

REPORT INFORMATION
  Report Type: Spontaneous
  Country: US (occurrence: US)
  Receive Date: 20240529
  Receipt Date: 20240529
  Transmission Date: 20240716
  Serious: No
  Sender: FDA-Public Use
  Company Number: US-SA-SAC20240523000916

PATIENT
  Age: 27 Year
  Sex: Female

DRUGS (1)
  1. DUPIXENT [Suspect]
     Active Substance: DUPILUMAB
     Indication: Dermatitis atopic
     Dosage: 300 MG, QOW
     Route: 065
     Dates: start: 202404

REACTIONS (9)
  - Nervousness [Unknown]
  - Lip swelling [Unknown]
  - Periorbital swelling [Unknown]
  - Dry skin [Unknown]
  - Eye discharge [Unknown]
  - Throat tightness [Unknown]
  - Pruritus [Unknown]
  - Skin exfoliation [Unknown]
  - Eye irritation [Unknown]

NARRATIVE: CASE EVENT DATE: 20240101
